FAERS Safety Report 10611282 (Version 1)
Quarter: 2014Q4

REPORT INFORMATION
  Report Type: Report from Study
  Country: AU (occurrence: AU)
  Receive Date: 20141126
  Receipt Date: 20141126
  Transmission Date: 20150529
  Serious: Yes (Death, Hospitalization)
  Sender: FDA-Public Use
  Company Number: PHHY2014AU152558

PATIENT
  Age: 64 Year
  Sex: Male

DRUGS (5)
  1. MYCOPHENOLATE MOFETIL. [Suspect]
     Active Substance: MYCOPHENOLATE MOFETIL
     Indication: IMMUNOSUPPRESSION
     Dosage: UNK
     Route: 065
  2. BASILIXIMAB [Suspect]
     Active Substance: BASILIXIMAB
     Indication: IMMUNOSUPPRESSION
     Dosage: UNK
     Route: 065
  3. CICLOSPORIN [Suspect]
     Active Substance: CYCLOSPORINE
     Indication: IMMUNOSUPPRESSION
     Dosage: UNK
     Route: 065
  4. PREDNISOLONE. [Suspect]
     Active Substance: PREDNISOLONE
     Indication: IMMUNOSUPPRESSION
     Dosage: UNK
     Route: 065
  5. PREDNISOLONE. [Suspect]
     Active Substance: PREDNISOLONE
     Dosage: 50 MG, QD
     Route: 065

REACTIONS (20)
  - Pneumonia aspiration [Fatal]
  - Abdominal pain [Unknown]
  - Depression [Unknown]
  - Abdominal distension [Unknown]
  - Status epilepticus [Unknown]
  - Post procedural complication [Unknown]
  - Iron deficiency anaemia [Unknown]
  - Toxicity to various agents [Unknown]
  - Renal tubular necrosis [Unknown]
  - Epstein-Barr virus infection [Unknown]
  - Renal impairment [Unknown]
  - Pyrexia [Unknown]
  - B-cell lymphoma [Unknown]
  - Generalised tonic-clonic seizure [Unknown]
  - Post transplant lymphoproliferative disorder [Unknown]
  - Pseudomonas infection [Unknown]
  - Intestinal perforation [Unknown]
  - Central nervous system lesion [Unknown]
  - Transplant dysfunction [Unknown]
  - Haemorrhage intracranial [Unknown]
